FAERS Safety Report 6262832-7 (Version None)
Quarter: 2009Q3

REPORT INFORMATION
  Report Type: 
  Country: None (occurrence: None)
  Receive Date: 20090709
  Receipt Date: 20090701
  Transmission Date: 20100115
  Serious: Yes (Hospitalization, Other)
  Sender: FDA-Public Use
  Company Number: US-GILEAD-2009-0021919

PATIENT
  Sex: Female
  Weight: 49.032 kg

DRUGS (11)
  1. LETAIRIS [Suspect]
     Indication: PULMONARY ARTERIAL HYPERTENSION
     Route: 048
     Dates: start: 20081230, end: 20090419
  2. LETAIRIS [Suspect]
     Route: 048
     Dates: start: 20080709
  3. VENTAVIS [Concomitant]
     Indication: PULMONARY ARTERIAL HYPERTENSION
  4. VIAGRA [Concomitant]
     Indication: PULMONARY ARTERIAL HYPERTENSION
  5. COUMADIN [Concomitant]
  6. OXYGEN [Concomitant]
  7. DIGOXIN [Concomitant]
  8. LEVOTHYROXINE SODIUM [Concomitant]
  9. LANTUS [Concomitant]
  10. INSULIN LISPRO [Concomitant]
  11. DOXEPIN HCL [Concomitant]

REACTIONS (4)
  - ABORTION MISSED [None]
  - DRUG DOSE OMISSION [None]
  - DRUG EXPOSURE DURING PREGNANCY [None]
  - ECTOPIC PREGNANCY [None]
